FAERS Safety Report 7103538-1 (Version None)
Quarter: 2010Q4

REPORT INFORMATION
  Report Type: 
  Country: None (occurrence: None)
  Receive Date: 20101115
  Receipt Date: 20101105
  Transmission Date: 20110411
  Serious: Yes (Other)
  Sender: FDA-Public Use
  Company Number: CN-BAYER-201045154GPV

PATIENT
  Age: 74 Year
  Sex: Male

DRUGS (1)
  1. 8-HOUR BAYER [Suspect]
     Indication: CORONARY ARTERY DISEASE
     Dosage: TOTAL DAILY DOSE: 100 MG
     Route: 048
     Dates: start: 20101001

REACTIONS (1)
  - RETINAL HAEMORRHAGE [None]
